FAERS Safety Report 18054162 (Version 3)
Quarter: 2020Q3

REPORT INFORMATION
  Report Type: Spontaneous
  Country: BE (occurrence: BE)
  Receive Date: 20200722
  Receipt Date: 20200728
  Transmission Date: 20201103
  Serious: Yes (Hospitalization)
  Sender: FDA-Public Use
  Company Number: PHHY2019BE003765

PATIENT
  Sex: Female

DRUGS (10)
  1. AMOXICILLIN,CLAVULANIC ACID [Suspect]
     Active Substance: AMOXICILLIN\CLAVULANIC ACID
     Indication: URINARY TRACT INFECTION BACTERIAL
     Dosage: 4 GRAM, QD
     Route: 042
  2. ANIDULAFUNGIN [Suspect]
     Active Substance: ANIDULAFUNGIN
     Indication: CANDIDA INFECTION
     Dosage: 100 MILLIGRAM, QD
     Route: 065
  3. AMPHOTERICIN B. [Concomitant]
     Active Substance: AMPHOTERICIN B
     Indication: CANDIDA INFECTION
     Dosage: UNK
     Route: 065
  4. AMPHOTERICIN B. [Concomitant]
     Active Substance: AMPHOTERICIN B
     Dosage: UNK
     Route: 065
  5. FLUCONAZOLE. [Suspect]
     Active Substance: FLUCONAZOLE
     Indication: CANDIDA INFECTION
     Dosage: 800 MG, DAILY
     Route: 042
     Dates: start: 2016
  6. CASPOFUNGIN [Suspect]
     Active Substance: CASPOFUNGIN
     Indication: CANDIDA INFECTION
     Dosage: UNK
     Route: 065
  7. FLUCONAZOLE. [Suspect]
     Active Substance: FLUCONAZOLE
     Indication: EVIDENCE BASED TREATMENT
  8. LEVOFLOXACIN. [Suspect]
     Active Substance: LEVOFLOXACIN
     Indication: URINARY TRACT INFECTION
     Dosage: 750 MG, DAILY
     Route: 065
     Dates: start: 2016
  9. ANIDULAFUNGIN [Suspect]
     Active Substance: ANIDULAFUNGIN
     Dosage: 200 MILLIGRAM, (LOADING DOSE)
     Route: 065
  10. LEVOFLOXACIN. [Suspect]
     Active Substance: LEVOFLOXACIN
     Indication: EVIDENCE BASED TREATMENT

REACTIONS (7)
  - Pathogen resistance [Recovered/Resolved]
  - Device related sepsis [Recovered/Resolved]
  - Septic pulmonary embolism [Recovered/Resolved]
  - Candida infection [Recovered/Resolved]
  - Drug resistance [Unknown]
  - Thrombophlebitis septic [Recovered/Resolved]
  - Fungal endocarditis [Recovered/Resolved]
